FAERS Safety Report 10445914 (Version 1)
Quarter: 2014Q3

REPORT INFORMATION
  Report Type: Spontaneous
  Country: JP (occurrence: JP)
  Receive Date: 20140910
  Receipt Date: 20140910
  Transmission Date: 20150326
  Serious: Yes (Hospitalization)
  Sender: FDA-Public Use
  Company Number: CHPA2014JP011756

PATIENT
  Sex: Male

DRUGS (1)
  1. NICOTINE TRANSDERMAL SYSTEM [Suspect]
     Active Substance: NICOTINE
     Dosage: 52.5 MG, QD
     Route: 062
     Dates: start: 201408

REACTIONS (2)
  - Post-traumatic neck syndrome [Unknown]
  - Road traffic accident [Unknown]

NARRATIVE: CASE EVENT DATE: 201408
